FAERS Safety Report 12223113 (Version 1)
Quarter: 2016Q1

REPORT INFORMATION
  Report Type: Spontaneous
  Country: US (occurrence: US)
  Receive Date: 20160330
  Receipt Date: 20160330
  Transmission Date: 20160526
  Serious: Yes (Hospitalization)
  Sender: FDA-Public Use
  Company Number: PHHY2016US040437

PATIENT
  Age: 4 Year
  Sex: Female

DRUGS (1)
  1. CARBAMAZEPINE. [Suspect]
     Active Substance: CARBAMAZEPINE
     Indication: EPILEPSY
     Dosage: UNK
     Route: 065

REACTIONS (8)
  - Anticonvulsant drug level increased [Unknown]
  - Pyrexia [Unknown]
  - Vomiting [Unknown]
  - Drug-induced liver injury [Recovered/Resolved]
  - Somnolence [Unknown]
  - Acute hepatic failure [Unknown]
  - Hepatic encephalopathy [Unknown]
  - Thrombocytopenia [Unknown]
